FAERS Safety Report 8515950-4 (Version None)
Quarter: 2012Q3

REPORT INFORMATION
  Report Type: 
  Country: None (occurrence: None)
  Receive Date: 20120717
  Receipt Date: 20120713
  Transmission Date: 20120928
  Serious: No
  Sender: FDA-Public Use
  Company Number: US-B.I. PHARMACEUTICALS,INC./RIDGEFIELD-2012-BP-15713BP

PATIENT
  Sex: Male

DRUGS (10)
  1. ALLOPURINOL [Concomitant]
     Indication: GOUT
     Route: 048
  2. AMLODIPINE [Concomitant]
     Indication: BLOOD PRESSURE
     Dosage: 5 NR
     Route: 048
  3. ENALAPRIL MALEATE [Concomitant]
     Indication: HYPERTENSION
     Dosage: 40 MG
     Route: 048
  4. CELEBREX [Concomitant]
     Indication: ARTHRALGIA
     Dosage: 200 MG
     Route: 048
  5. AVAPRO [Concomitant]
     Indication: BLOOD PRESSURE
  6. DETROL LA [Concomitant]
     Indication: MICTURITION DISORDER
     Route: 048
  7. CELEDRIN [Concomitant]
     Indication: ARTHROPATHY
     Route: 048
  8. MULTI-VITAMINS [Concomitant]
  9. PRADAXA [Suspect]
     Indication: ATRIAL FIBRILLATION
     Dosage: 300 MG
     Route: 048
     Dates: start: 20100101
  10. FUROSEMIDE [Concomitant]
     Indication: FLUID RETENTION
     Dosage: 20 NR

REACTIONS (6)
  - OPEN WOUND [None]
  - ARTHRALGIA [None]
  - LACERATION [None]
  - SKIN DISCOLOURATION [None]
  - FLUID RETENTION [None]
  - CERVICAL SPINAL STENOSIS [None]
